FAERS Safety Report 4524917-2 (Version None)
Quarter: 2004Q4

REPORT INFORMATION
  Report Type: 
  Country: None (occurrence: None)
  Receive Date: 20041210
  Receipt Date: 20041202
  Transmission Date: 20050328
  Serious: No
  Sender: FDA-Public Use
  Company Number: 003658

PATIENT
  Age: 20 Year
  Sex: Male
  Weight: 88.4 kg

DRUGS (3)
  1. CLARAVIS [Suspect]
     Indication: ACNE
     Dosage: 40.00 MG, BID, ORAL
     Route: 048
     Dates: start: 20031101, end: 20031101
  2. CLARAVIS [Suspect]
     Indication: ACNE
     Dosage: 40.00 MG, BID, ORAL
     Route: 048
     Dates: start: 20041101
  3. PREDNISONE [Concomitant]

REACTIONS (4)
  - ACNE [None]
  - ARTHRALGIA [None]
  - DEVICE FAILURE [None]
  - LIGAMENT INJURY [None]
